FAERS Safety Report 25361302 (Version 2)
Quarter: 2025Q2

REPORT INFORMATION
  Report Type: Spontaneous
  Country: US (occurrence: US)
  Receive Date: 20250527
  Receipt Date: 20250602
  Transmission Date: 20250717
  Serious: Yes (Hospitalization, Other)
  Sender: TEVA
  Company Number: GB-RP-045256

PATIENT
  Age: 41 Year
  Sex: Male

DRUGS (3)
  1. TAMOXIFEN [Suspect]
     Active Substance: TAMOXIFEN
     Indication: Hormone replacement therapy
     Route: 048
  2. ANASTROZOLE [Suspect]
     Active Substance: ANASTROZOLE
     Indication: Hormone replacement therapy
     Dosage: 0.25 MG WEEKLY FOR THE PAST 18 MONTHS
     Route: 048
  3. TESTOSTERONE CYPIONATE [Suspect]
     Active Substance: TESTOSTERONE CYPIONATE
     Indication: Hormone replacement therapy
     Route: 030

REACTIONS (3)
  - Acute myocardial infarction [Unknown]
  - Cardiac ventricular thrombosis [Unknown]
  - Off label use [Unknown]
